FAERS Safety Report 12284274 (Version 1)
Quarter: 2016Q2

REPORT INFORMATION
  Report Type: Spontaneous
  Country: JP (occurrence: JP)
  Receive Date: 20160420
  Receipt Date: 20160420
  Transmission Date: 20160815
  Serious: Yes (Hospitalization, Other)
  Sender: FDA-Public Use
  Company Number: JP-MACLEODS PHARMACEUTICALS US LTD-MAC2016002653

PATIENT

DRUGS (5)
  1. CEFCAPENE PIVOXIL HYDROCHLORIDE [Suspect]
     Active Substance: CEFCAPENE PIVOXIL HYDROCHLORIDE
     Indication: PYREXIA
     Dosage: 300 MG, QD
     Route: 065
     Dates: start: 201309
  2. LEVOFLOXACIN. [Suspect]
     Active Substance: LEVOFLOXACIN
     Indication: PYREXIA
     Dosage: 500 MG, QD
     Route: 065
     Dates: start: 201309
  3. SODIUM VALPROATE [Suspect]
     Active Substance: VALPROATE SODIUM
     Indication: MIGRAINE
     Dosage: UNK
     Route: 065
  4. AMOXICILLIN/CLAVULANATE POTASSIUM [Suspect]
     Active Substance: AMOXICILLIN\CLAVULANATE POTASSIUM
     Indication: PYREXIA
     Dosage: 375 MG, QD
     Route: 065
     Dates: start: 201309
  5. PARACETAMOL [Suspect]
     Active Substance: ACETAMINOPHEN
     Indication: PYREXIA
     Dosage: OCCASIONAL USE
     Route: 065
     Dates: start: 201309

REACTIONS (7)
  - Ocular hyperaemia [None]
  - Iridocyclitis [None]
  - Fatigue [None]
  - Tubulointerstitial nephritis and uveitis syndrome [None]
  - Decreased appetite [None]
  - Renal impairment [None]
  - Visual acuity reduced [None]

NARRATIVE: CASE EVENT DATE: 201402
